FAERS Safety Report 25715493 (Version 2)
Quarter: 2025Q3

REPORT INFORMATION
  Report Type: Spontaneous
  Country: US (occurrence: US)
  Receive Date: 20250822
  Receipt Date: 20250910
  Transmission Date: 20251021
  Serious: Yes (Other)
  Sender: AUROBINDO
  Company Number: US-MLMSERVICE-20250804-PI603270-00323-1

PATIENT
  Age: 4 Year
  Sex: Female

DRUGS (2)
  1. TRIAMCINOLONE [Suspect]
     Active Substance: TRIAMCINOLONE
     Indication: Strabismus
     Route: 050
  2. NAPROXEN [Suspect]
     Active Substance: NAPROXEN
     Indication: Strabismus
     Route: 048

REACTIONS (3)
  - Lipodystrophy acquired [Recovered/Resolved]
  - Drug ineffective [Unknown]
  - Injection site atrophy [Recovered/Resolved]
